FAERS Safety Report 7610291-1 (Version None)
Quarter: 2011Q3

REPORT INFORMATION
  Report Type: 
  Country: None (occurrence: None)
  Receive Date: 20110706
  Receipt Date: 20110621
  Transmission Date: 20111222
  Serious: Yes (Other)
  Sender: FDA-Public Use
  Company Number: 965007

PATIENT
  Age: 34 Year
  Sex: Female
  Weight: 45.2 kg

DRUGS (14)
  1. (HUMULIN S) [Concomitant]
  2. CREON [Concomitant]
  3. SODIUM CHLORIDE [Concomitant]
  4. LANTUS [Concomitant]
  5. (VITAMIN A + D /00343801/) [Concomitant]
  6. MEROPENEM [Suspect]
     Indication: CYSTIC FIBROSIS
     Dosage: 2 G GRAM(S) (1 DAY), INTRAVENOUS BOLUS
     Route: 040
     Dates: start: 20110504, end: 20110504
  7. MEROPENEM [Suspect]
     Indication: CONDITION AGGRAVATED
     Dosage: 2 G GRAM(S) (1 DAY), INTRAVENOUS BOLUS
     Route: 040
     Dates: start: 20110504, end: 20110504
  8. VITAMIN E /00110501/) [Concomitant]
  9. (IPRAMOL) [Concomitant]
  10. OMEPRAZOLE [Concomitant]
  11. (COLOMYCIN /00013203) [Concomitant]
  12. PULMOZYME [Concomitant]
  13. HUMALOG [Concomitant]
  14. (SERETIDE) [Concomitant]

REACTIONS (4)
  - DYSPNOEA [None]
  - ERYTHEMA [None]
  - FEELING HOT [None]
  - MALAISE [None]
